FAERS Safety Report 6971024-5 (Version None)
Quarter: 2010Q3

REPORT INFORMATION
  Report Type: 
  Country: None (occurrence: None)
  Receive Date: 20100908
  Receipt Date: 20100827
  Transmission Date: 20110219
  Serious: Yes (Hospitalization)
  Sender: FDA-Public Use
  Company Number: JP-ROCHE-725196

PATIENT
  Age: 52 Year
  Sex: Female

DRUGS (1)
  1. DENOSINE IV [Suspect]
     Indication: PRODUCT USED FOR UNKNOWN INDICATION
     Route: 042
     Dates: start: 20100809, end: 20100823

REACTIONS (1)
  - BONE MARROW FAILURE [None]
